FAERS Safety Report 25541316 (Version 2)
Quarter: 2025Q3

REPORT INFORMATION
  Report Type: Report from Study
  Country: US (occurrence: US)
  Receive Date: 20250711
  Receipt Date: 20250721
  Transmission Date: 20251021
  Serious: No
  Sender: MALLINCKRODT
  Company Number: US-MALLINCKRODT-MNK202503752

PATIENT
  Age: 57 Year
  Sex: Male
  Weight: 158 kg

DRUGS (1)
  1. CORTICOTROPIN [Suspect]
     Active Substance: CORTICOTROPIN
     Indication: Nephrotic syndrome
     Dosage: 80 UNITS
     Route: 058
     Dates: start: 20250531

REACTIONS (4)
  - Diarrhoea [Unknown]
  - Blood potassium decreased [Unknown]
  - Middle insomnia [Unknown]
  - Mood altered [Unknown]

NARRATIVE: CASE EVENT DATE: 20250101
